FAERS Safety Report 24997231 (Version 2)
Quarter: 2025Q1

REPORT INFORMATION
  Report Type: Spontaneous
  Country: US (occurrence: US)
  Receive Date: 20250221
  Receipt Date: 20250224
  Transmission Date: 20250409
  Serious: No
  Sender: ABBVIE
  Company Number: US-ABBVIE-6143602

PATIENT
  Sex: Female

DRUGS (1)
  1. LILETTA [Suspect]
     Active Substance: LEVONORGESTREL
     Indication: Contraception
     Route: 015

REACTIONS (5)
  - Rash [Unknown]
  - Drug hypersensitivity [Unknown]
  - Skin burning sensation [Unknown]
  - Erythema [Unknown]
  - Skin discolouration [Unknown]
